FAERS Safety Report 10189745 (Version 5)
Quarter: 2020Q4

REPORT INFORMATION
  Report Type: Spontaneous
  Country: US (occurrence: US)
  Receive Date: 20140522
  Receipt Date: 20201229
  Transmission Date: 20210113
  Serious: Yes (Other)
  Sender: FDA-Public Use
  Company Number: US-SA-2014SA043597

PATIENT

DRUGS (5)
  1. LANTUS [Suspect]
     Active Substance: INSULIN GLARGINE
     Indication: TYPE 2 DIABETES MELLITUS
     Dosage: 35 IU,QD
     Route: 065
     Dates: start: 2010
  2. LANTUS [Suspect]
     Active Substance: INSULIN GLARGINE
     Dosage: 35 IU,QD
     Route: 065
     Dates: start: 201403
  3. AMOXICILLIN. [Concomitant]
     Active Substance: AMOXICILLIN
     Indication: KIDNEY INFECTION
     Dosage: UNK UNK,QD
     Route: 065
  4. LANTUS [Suspect]
     Active Substance: INSULIN GLARGINE
     Dosage: 35 IU,QD
     Route: 065
  5. LANTUS [Suspect]
     Active Substance: INSULIN GLARGINE
     Dosage: 34 IU, ONE TIME A DAY
     Route: 065

REACTIONS (8)
  - Blood glucose decreased [Unknown]
  - Product quality issue [Unknown]
  - Cardiomegaly [Unknown]
  - Tremor [Unknown]
  - Glomerular filtration rate decreased [Unknown]
  - Hyperhidrosis [Unknown]
  - Blood pressure abnormal [Unknown]
  - Blood glucose increased [Recovered/Resolved]

NARRATIVE: CASE EVENT DATE: 20140402
